FAERS Safety Report 24959235 (Version 1)
Quarter: 2025Q1

REPORT INFORMATION
  Report Type: Spontaneous
  Country: US (occurrence: US)
  Receive Date: 20250212
  Receipt Date: 20250212
  Transmission Date: 20250408
  Serious: No
  Sender: NOVARTIS
  Company Number: US-SANDOZ-SDZ2025US008013

PATIENT
  Age: 76 Year
  Sex: Female
  Weight: 62.6 kg

DRUGS (2)
  1. LETROZOLE [Suspect]
     Active Substance: LETROZOLE
     Indication: Breast cancer female
     Route: 048
     Dates: start: 20190729
  2. ANASTROZOLE [Suspect]
     Active Substance: ANASTROZOLE
     Indication: Breast cancer female
     Route: 065
     Dates: start: 20190729

REACTIONS (2)
  - Pain in extremity [Unknown]
  - Drug intolerance [Unknown]
